FAERS Safety Report 9031094 (Version 1)
Quarter: 2013Q1

REPORT INFORMATION
  Report Type: Spontaneous
  Country: US (occurrence: US)
  Receive Date: 20130123
  Receipt Date: 20130123
  Transmission Date: 20140127
  Serious: Yes (Hospitalization, Other)
  Sender: FDA-Public Use
  Company Number: US-US-EMD SERONO, INC.-235523K07USA

PATIENT
  Sex: Female
  Weight: 79.9 kg

DRUGS (6)
  1. REBIF [Suspect]
     Indication: MULTIPLE SCLEROSIS
     Route: 058
     Dates: start: 20070404
  2. PREMPRO [Concomitant]
     Indication: PRODUCT USED FOR UNKNOWN INDICATION
  3. NAPROXEN [Concomitant]
     Indication: BONE PAIN
  4. ATIVAN [Concomitant]
     Indication: PRODUCT USED FOR UNKNOWN INDICATION
  5. KEPPRA [Concomitant]
     Indication: CONVULSION
  6. LAMICTAL [Concomitant]
     Indication: CONVULSION

REACTIONS (7)
  - Dehydration [Unknown]
  - Convulsion [Recovered/Resolved]
  - Contusion [Unknown]
  - Drug level below therapeutic [Unknown]
  - Chest pain [Recovered/Resolved]
  - Hypoaesthesia [Unknown]
  - Injection site bruising [Unknown]
